FAERS Safety Report 13053615 (Version 1)
Quarter: 2016Q4

REPORT INFORMATION
  Report Type: Report from Study
  Country: None (occurrence: BR)
  Receive Date: 20161222
  Receipt Date: 20161222
  Transmission Date: 20170207
  Serious: Yes (Hospitalization, Other)
  Sender: FDA-Public Use
  Company Number: BR-ABBVIE-16K-020-1809816-00

PATIENT
  Age: 49 Year
  Sex: Male
  Weight: 80 kg

DRUGS (1)
  1. HUMIRA [Suspect]
     Active Substance: ADALIMUMAB
     Indication: PSORIATIC ARTHROPATHY
     Route: 058
     Dates: start: 20130101, end: 2014

REACTIONS (13)
  - Fluid intake reduced [Recovered/Resolved]
  - Malaise [Unknown]
  - Throat tightness [Recovered/Resolved]
  - Hyperhidrosis [Recovered/Resolved]
  - Headache [Recovered/Resolved]
  - Tuberculosis of central nervous system [Recovered/Resolved]
  - Extrapulmonary tuberculosis [Unknown]
  - Immunodeficiency [Recovered/Resolved]
  - Extrapulmonary tuberculosis [Recovered/Resolved]
  - Cholelithiasis [Recovered/Resolved]
  - Seizure [Recovered/Resolved]
  - Granuloma [Recovered/Resolved]
  - Hypophagia [Recovered/Resolved]

NARRATIVE: CASE EVENT DATE: 201312
